FAERS Safety Report 21090921 (Version 2)
Quarter: 2025Q1

REPORT INFORMATION
  Report Type: Spontaneous
  Country: FR (occurrence: FR)
  Receive Date: 20220716
  Receipt Date: 20250214
  Transmission Date: 20250409
  Serious: Yes (Congenital Anomaly)
  Sender: TEVA
  Company Number: None

PATIENT

DRUGS (3)
  1. SUMATRIPTAN [Suspect]
     Active Substance: SUMATRIPTAN
     Indication: Migraine
     Route: 064
     Dates: start: 20220119, end: 20220504
  2. ELETRIPTAN [Suspect]
     Active Substance: ELETRIPTAN
     Indication: Migraine
     Route: 064
     Dates: start: 20211220, end: 20220119
  3. SUMATRIPTAN [Suspect]
     Active Substance: SUMATRIPTAN
     Indication: Migraine
     Route: 064
     Dates: start: 20220504

REACTIONS (2)
  - Foetal growth restriction [Not Recovered/Not Resolved]
  - Microcephaly [Not Recovered/Not Resolved]
